FAERS Safety Report 8299608-5 (Version None)
Quarter: 2012Q2

REPORT INFORMATION
  Report Type: 
  Country: None (occurrence: None)
  Receive Date: 20120419
  Receipt Date: 20120412
  Transmission Date: 20120825
  Serious: Yes (Hospitalization, Other)
  Sender: FDA-Public Use
  Company Number: US-GLAXOSMITHKLINE-A0973841A

PATIENT
  Sex: Female

DRUGS (2)
  1. HERCEPTIN [Concomitant]
  2. TYKERB [Suspect]
     Indication: BREAST CANCER

REACTIONS (1)
  - STEVENS-JOHNSON SYNDROME [None]
